FAERS Safety Report 19878966 (Version 1)
Quarter: 2021Q3

REPORT INFORMATION
  Report Type: Spontaneous
  Country: US (occurrence: US)
  Receive Date: 20210923
  Receipt Date: 20210923
  Transmission Date: 20211014
  Serious: Yes (Death, Hospitalization)
  Sender: FDA-Public Use
  Company Number: NVSC2021US215209

PATIENT
  Age: 60 Year
  Sex: Male

DRUGS (4)
  1. RANITIDINE. [Suspect]
     Active Substance: RANITIDINE
     Indication: DYSPEPSIA
     Dosage: 150 MG, QD
     Route: 048
     Dates: start: 200001, end: 201911
  2. RANITIDINE. [Suspect]
     Active Substance: RANITIDINE
     Indication: ABDOMINAL DISCOMFORT
  3. RANITIDINE. [Suspect]
     Active Substance: RANITIDINE
     Indication: ABDOMINAL DISCOMFORT
  4. RANITIDINE. [Suspect]
     Active Substance: RANITIDINE
     Indication: DYSPEPSIA
     Dosage: 150 MG, QD
     Route: 048
     Dates: start: 200001, end: 201911

REACTIONS (11)
  - Metastases to bone [Unknown]
  - Oesophageal cancer metastatic [Unknown]
  - Incorrect dose administered [Unknown]
  - Death [Fatal]
  - Oesophageal carcinoma [Unknown]
  - Dysphagia [Unknown]
  - Mobility decreased [Unknown]
  - Hepatic cancer [Unknown]
  - Lung neoplasm malignant [Unknown]
  - Gastric cancer [Unknown]
  - Injury [Unknown]

NARRATIVE: CASE EVENT DATE: 20190101
